FAERS Safety Report 24251781 (Version 1)
Quarter: 2024Q3

REPORT INFORMATION
  Report Type: Spontaneous
  Country: US (occurrence: US)
  Receive Date: 20240827
  Receipt Date: 20240827
  Transmission Date: 20241016
  Serious: Yes (Death, Other)
  Sender: BRISTOL MYERS SQUIBB
  Company Number: US-BRISTOL-MYERS SQUIBB COMPANY-2024-134649

PATIENT
  Age: 63 Year
  Sex: Male

DRUGS (1)
  1. OPDIVO [Suspect]
     Active Substance: NIVOLUMAB
     Indication: Gastric cancer
     Route: 042

REACTIONS (1)
  - Death [Fatal]

NARRATIVE: CASE EVENT DATE: 20240116
